FAERS Safety Report 21170494 (Version 1)
Quarter: 2022Q3

REPORT INFORMATION
  Report Type: Spontaneous
  Country: GB (occurrence: GB)
  Receive Date: 20220804
  Receipt Date: 20220804
  Transmission Date: 20221026
  Serious: Yes (Other)
  Sender: FDA-Public Use
  Company Number: None

PATIENT
  Age: 16 Year
  Sex: Female
  Weight: 50 kg

DRUGS (3)
  1. NAPROXEN [Suspect]
     Active Substance: NAPROXEN
     Indication: Product used for unknown indication
     Dosage: UNK
     Route: 048
  2. NAPROXEN [Suspect]
     Active Substance: NAPROXEN
     Dosage: 1.5 DOSAGE FORM, BID
     Route: 048
     Dates: start: 20220419
  3. NAPROXEN [Concomitant]
     Active Substance: NAPROXEN
     Dosage: UNK UNK, BID (1 AND A HALF TABLETS TWICE DAILY)
     Route: 065
     Dates: start: 20220419

REACTIONS (1)
  - Amenorrhoea [Recovering/Resolving]

NARRATIVE: CASE EVENT DATE: 20220422
